FAERS Safety Report 5237239-1 (Version None)
Quarter: 2007Q1

REPORT INFORMATION
  Report Type: 
  Country: None (occurrence: None)
  Receive Date: 20070213
  Receipt Date: 20070205
  Transmission Date: 20070707
  Serious: Yes (Other)
  Sender: FDA-Public Use
  Company Number: IT-BRISTOL-MYERS SQUIBB COMPANY-13668512

PATIENT
  Age: 48 Year
  Sex: Female

DRUGS (3)
  1. PACLITAXEL [Suspect]
     Indication: BREAST CANCER
  2. EPIRUBICIN [Suspect]
     Indication: BREAST CANCER
  3. TRASTUZUMAB [Suspect]
     Indication: BREAST CANCER

REACTIONS (3)
  - NEUROPATHY PERIPHERAL [None]
  - ONYCHOLYSIS [None]
  - PARONYCHIA [None]
